FAERS Safety Report 6140133-5 (Version None)
Quarter: 2009Q1

REPORT INFORMATION
  Report Type: 
  Country: None (occurrence: None)
  Receive Date: 20090324
  Receipt Date: 20090311
  Transmission Date: 20090719
  Serious: Yes (Hospitalization)
  Sender: FDA-Public Use
  Company Number: GB-DEXPHARM-20090334

PATIENT
  Age: 86 Year
  Sex: Female

DRUGS (8)
  1. ISOSORBIDE MONONITRATE [Suspect]
     Indication: ANGINA PECTORIS
     Dosage: ORAL
     Route: 048
     Dates: start: 20090128, end: 20090202
  2. ALLOPURINOL [Suspect]
     Dosage: 300 MG MILLIGRAM(S) ORAL
     Route: 048
     Dates: start: 20081219, end: 20090202
  3. ASPIRIN [Concomitant]
  4. CO-AMILOFRUSE [Concomitant]
  5. GLICLAZIDE [Concomitant]
  6. LANSOPRAZOLE [Concomitant]
  7. SIMVASTATIN [Concomitant]
  8. TEMAZEPAM [Concomitant]

REACTIONS (2)
  - DRUG RASH WITH EOSINOPHILIA AND SYSTEMIC SYMPTOMS [None]
  - RENAL FAILURE ACUTE [None]
